FAERS Safety Report 21890320 (Version 1)
Quarter: 2023Q1

REPORT INFORMATION
  Report Type: Spontaneous
  Country: BE (occurrence: BE)
  Receive Date: 20230120
  Receipt Date: 20230120
  Transmission Date: 20230418
  Serious: Yes (Other)
  Sender: FDA-Public Use
  Company Number: None

PATIENT
  Age: 60 Year
  Sex: Female
  Weight: 51 kg

DRUGS (10)
  1. PACLITAXEL [Suspect]
     Active Substance: PACLITAXEL
     Dosage: UNK
     Dates: end: 20220105
  2. ARANESP [Suspect]
     Active Substance: DARBEPOETIN ALFA
     Dosage: UNK
     Dates: end: 20220105
  3. HERCEPTIN [Suspect]
     Active Substance: TRASTUZUMAB
     Dosage: UNK
     Dates: end: 20220105
  4. PERJETA [Suspect]
     Active Substance: PERTUZUMAB
     Dosage: UNK
     Route: 042
     Dates: end: 20220105
  5. IMODIUM [Concomitant]
     Active Substance: LOPERAMIDE HYDROCHLORIDE
     Dosage: 2 MG, AS NEEDED (IN CASE OF DIARRHEA 2 COMP, THEN 1 PER LOOSE STOOL UP TO MAX 8/DAY)
  6. PANTOPRAZOLE SODIUM [Concomitant]
     Active Substance: PANTOPRAZOLE SODIUM
     Dosage: 40 MG, 1X/DAY
  7. ACETAMINOPHEN [Concomitant]
     Active Substance: ACETAMINOPHEN
     Dosage: 1 G, AS NEEDED (EVERY 6 HOURS 1 TABLET IN CASE OF PAIN AND/OR FEVER } 38?C = EMERGENCY ADMISSION)
  8. ROCALTROL [Concomitant]
     Active Substance: CALCITRIOL
     Dosage: 1 UG, 1X/DAY(0.5 MICROGRAMS)
  9. STEOVIT FORTE [Concomitant]
     Dosage: UNK, 2X/DAY(2 X DAILY 1 EFFERVESCENT TABLET), (1000 MG/800 U.I.)
  10. ZYRTEC [Concomitant]
     Active Substance: CETIRIZINE HYDROCHLORIDE
     Dosage: 10 MG, WEEKLY (1X/WEEK 1 HOUR BEFORE THE CHEMA 1 TABLET)

REACTIONS (1)
  - Chills [Recovered/Resolved]
